FAERS Safety Report 24411739 (Version 2)
Quarter: 2024Q4

REPORT INFORMATION
  Report Type: Spontaneous
  Country: US (occurrence: US)
  Receive Date: 20241008
  Receipt Date: 20241011
  Transmission Date: 20250114
  Serious: No
  Sender: CHATTEM
  Company Number: US-OPELLA-2024OHG034369

PATIENT

DRUGS (1)
  1. NASACORT [Suspect]
     Active Substance: TRIAMCINOLONE ACETONIDE
     Indication: Product used for unknown indication

REACTIONS (1)
  - Nausea [Unknown]
